FAERS Safety Report 5304630-4 (Version None)
Quarter: 2007Q2

REPORT INFORMATION
  Report Type: 
  Country: None (occurrence: None)
  Receive Date: 20070416
  Receipt Date: 20070403
  Transmission Date: 20071010
  Serious: Yes (Hospitalization)
  Sender: FDA-Public Use
  Company Number: MEDI-0005069

PATIENT
  Age: 4 Month
  Sex: Female

DRUGS (9)
  1. SYNAGIS [Suspect]
     Indication: BRONCHOPULMONARY DYSPLASIA
     Dosage: SEE IMAGE
     Route: 030
     Dates: start: 20060207, end: 20060207
  2. SYNAGIS [Suspect]
     Indication: PREMATURE BABY
     Dosage: SEE IMAGE
     Route: 030
     Dates: start: 20060207, end: 20060207
  3. SYNAGIS [Suspect]
     Indication: BRONCHOPULMONARY DYSPLASIA
     Dosage: SEE IMAGE
     Route: 030
     Dates: start: 20070308
  4. SYNAGIS [Suspect]
     Indication: PREMATURE BABY
     Dosage: SEE IMAGE
     Route: 030
     Dates: start: 20070308
  5. VITAMIN A [Concomitant]
  6. VITAMIN D [Concomitant]
  7. VITAMIN E [Concomitant]
  8. ASCORBIC ACID [Concomitant]
  9. FLUOR [Concomitant]

REACTIONS (2)
  - ESCHERICHIA URINARY TRACT INFECTION [None]
  - GASTROENTERITIS [None]
